FAERS Safety Report 4446861-1 (Version None)
Quarter: 2004Q3

REPORT INFORMATION
  Report Type: 
  Country: None (occurrence: None)
  Receive Date: 20040908
  Receipt Date: 20040826
  Transmission Date: 20050211
  Serious: Yes (Death, Life-Threatening, Other)
  Sender: FDA-Public Use
  Company Number: 2004060681

PATIENT
  Age: 21 Year
  Sex: Male

DRUGS (2)
  1. NIFEDIPINE [Suspect]
     Indication: ILL-DEFINED DISORDER
     Dosage: INTRAVENOUS
     Route: 042
  2. BARBITURATES (BARBITURATES) [Suspect]
     Indication: ILL-DEFINED DISORDER

REACTIONS (3)
  - DRUG ABUSER [None]
  - OVERDOSE [None]
  - THERAPEUTIC AGENT TOXICITY [None]
